FAERS Safety Report 7900186-8 (Version None)
Quarter: 2011Q4

REPORT INFORMATION
  Report Type: 
  Country: None (occurrence: None)
  Receive Date: 20111108
  Receipt Date: 20111102
  Transmission Date: 20120403
  Serious: No
  Sender: FDA-Public Use
  Company Number: US-BIOGENIDEC-2011BI042135

PATIENT
  Age: 49 Year
  Sex: Male

DRUGS (1)
  1. TYSABRI [Suspect]
     Indication: MULTIPLE SCLEROSIS
     Route: 042
     Dates: start: 20090416

REACTIONS (9)
  - MUSCULOSKELETAL STIFFNESS [None]
  - NECK PAIN [None]
  - MUSCULOSKELETAL PAIN [None]
  - ARTHRALGIA [None]
  - ARTHRITIS [None]
  - DYSSTASIA [None]
  - BACK PAIN [None]
  - MUSCLE TIGHTNESS [None]
  - CHEST PAIN [None]
